FAERS Safety Report 9267531 (Version 1)
Quarter: 2013Q2

REPORT INFORMATION
  Report Type: Spontaneous
  Country: FR (occurrence: FR)
  Receive Date: 20130502
  Receipt Date: 20130502
  Transmission Date: 20140414
  Serious: Yes (Hospitalization)
  Sender: FDA-Public Use
  Company Number: FR-ASTRAZENECA-2013SE28326

PATIENT
  Age: 922 Month
  Sex: Male

DRUGS (9)
  1. CRESTOR [Suspect]
     Route: 048
     Dates: start: 2012, end: 201210
  2. PREVISCAN [Concomitant]
  3. CO OLMETEC [Concomitant]
  4. SOTALEX [Concomitant]
  5. MODOPAR [Concomitant]
  6. TEMESTA [Concomitant]
  7. PERMIXON [Concomitant]
  8. DAFALGAN [Concomitant]
  9. TOPALGIC [Concomitant]

REACTIONS (2)
  - Toxic skin eruption [Not Recovered/Not Resolved]
  - Anaemia [Unknown]
